FAERS Safety Report 6371006-0 (Version None)
Quarter: 2009Q3

REPORT INFORMATION
  Report Type: 
  Country: None (occurrence: None)
  Receive Date: 20090923
  Receipt Date: 20090915
  Transmission Date: 20100115
  Serious: Yes (Other)
  Sender: FDA-Public Use
  Company Number: BR-PFIZER INC-2009241449

PATIENT
  Age: 8 Year

DRUGS (4)
  1. EPELIN [Suspect]
     Indication: EPILEPSY
     Dosage: 4 ML, 3X/DAY
     Dates: start: 20080101
  2. EPELIN [Suspect]
     Indication: FRAGILE X SYNDROME
  3. HIDANTAL [Suspect]
     Indication: EPILEPSY
     Dosage: 100MG MORNING, 100MG AFTERNOON, 50MG NIGHT
  4. CARBAMAZEPINE [Concomitant]
     Dosage: UNK
     Dates: start: 20050101

REACTIONS (4)
  - AGITATION [None]
  - DISTURBANCE IN ATTENTION [None]
  - DRUG INEFFECTIVE [None]
  - SELF INJURIOUS BEHAVIOUR [None]
